FAERS Safety Report 7125077-4 (Version None)
Quarter: 2010Q4

REPORT INFORMATION
  Report Type: 
  Country: None (occurrence: None)
  Receive Date: 20101129
  Receipt Date: 20101014
  Transmission Date: 20110411
  Serious: Yes (Hospitalization)
  Sender: FDA-Public Use
  Company Number: US-AMGEN-USASP2010000332

PATIENT

DRUGS (2)
  1. ENBREL [Suspect]
     Indication: RHEUMATOID ARTHRITIS
     Dosage: UNK
     Dates: start: 20050101, end: 20061016
  2. SULFASALAZINE (AZULFIDINE) [Concomitant]
     Dosage: 2 MG, UNK
     Dates: start: 20100101

REACTIONS (15)
  - ANKLE FRACTURE [None]
  - ARTHRALGIA [None]
  - ASTHENIA [None]
  - BACK INJURY [None]
  - BACK PAIN [None]
  - COMPLEX REGIONAL PAIN SYNDROME [None]
  - CONTUSION [None]
  - FALL [None]
  - FATIGUE [None]
  - FIBULA FRACTURE [None]
  - IMPAIRED HEALING [None]
  - LIMB ASYMMETRY [None]
  - MUSCLE INJURY [None]
  - MUSCULOSKELETAL PAIN [None]
  - WEIGHT INCREASED [None]
